FAERS Safety Report 9518088 (Version 1)
Quarter: 2013Q1

REPORT INFORMATION
  Report Type: Spontaneous
  Country: US (occurrence: None)
  Receive Date: 20130305
  Receipt Date: 20130305
  Transmission Date: 20140127
  Serious: Yes (Hospitalization, Other)
  Sender: FDA-Public Use
  Company Number: 163-21880-12082539

PATIENT
  Age: 75 Year
  Sex: Female

DRUGS (1)
  1. REVLIMID [Suspect]
     Indication: AMYLOIDOSIS
     Dosage: 16.6667 MG, 14 IN 21 D, PO
     Route: 048
     Dates: start: 20120801

REACTIONS (8)
  - Hypotension [None]
  - Fall [None]
  - Dizziness [None]
  - Rash [None]
  - Pruritus [None]
  - Neuralgia [None]
  - Burning sensation [None]
  - Paraesthesia [None]
